FAERS Safety Report 5589783-5 (Version None)
Quarter: 2008Q1

REPORT INFORMATION
  Report Type: 
  Country: None (occurrence: None)
  Receive Date: 20080108
  Receipt Date: 20080102
  Transmission Date: 20080703
  Serious: Yes (Hospitalization)
  Sender: FDA-Public Use
  Company Number: 009-C5013-07110680

PATIENT
  Age: 84 Year
  Sex: Male
  Weight: 69.7 kg

DRUGS (6)
  1. CC-5013 (LENALIDOMIDE) (CAPSULES) [Suspect]
     Indication: MULTIPLE MYELOMA
     Dosage: 10 MG DAILY ORAL; 7.5 MG DAILY ORAL
     Route: 048
     Dates: start: 20070919, end: 20071113
  2. CC-5013 (LENALIDOMIDE) (CAPSULES) [Suspect]
     Indication: MULTIPLE MYELOMA
     Dosage: 10 MG DAILY ORAL; 7.5 MG DAILY ORAL
     Route: 048
     Dates: start: 20071219
  3. MELPHALAN (MELPHALAM) [Suspect]
     Indication: MULTIPLE MYELOMA
     Dosage: 12 MG DAILY ORAL;10 MG DAILY ORAL
     Route: 048
     Dates: start: 20070919, end: 20071113
  4. MELPHALAN (MELPHALAM) [Suspect]
     Indication: MULTIPLE MYELOMA
     Dosage: 12 MG DAILY ORAL;10 MG DAILY ORAL
     Route: 048
     Dates: start: 20071215
  5. PREDNISONE TAB [Suspect]
     Indication: MULTIPLE MYELOMA
     Dosage: 136 MG DAILY ORAL
     Route: 048
     Dates: start: 20070919, end: 20071113
  6. PREDNISONE TAB [Suspect]
     Indication: MULTIPLE MYELOMA
     Dosage: 136 MG DAILY ORAL
     Route: 048
     Dates: start: 20071219

REACTIONS (3)
  - GENERAL PHYSICAL HEALTH DETERIORATION [None]
  - NEUTROPENIA [None]
  - PYREXIA [None]
